FAERS Safety Report 5202753-1 (Version None)
Quarter: 2006Q4

REPORT INFORMATION
  Report Type: 
  Country: None (occurrence: None)
  Receive Date: 20061016
  Receipt Date: 20060829
  Transmission Date: 20070319
  Serious: No
  Sender: FDA-Public Use
  Company Number: 2006SP003144

PATIENT
  Age: 31 Year
  Sex: Female
  Weight: 63.5036 kg

DRUGS (7)
  1. LUNESTA [Suspect]
     Indication: INSOMNIA
     Dosage: 2 MG;HS;ORAL; 2 MG;HS;ORAL
     Route: 048
     Dates: start: 20060101, end: 20060101
  2. LUNESTA [Suspect]
     Indication: INSOMNIA
     Dosage: 2 MG;HS;ORAL; 2 MG;HS;ORAL
     Route: 048
     Dates: start: 20060825
  3. LAMOTRIGINE [Concomitant]
  4. BUPROPION HCL [Concomitant]
  5. SERTRALINE [Concomitant]
  6. CLARITIN-D [Concomitant]
  7. VITAMIN CAP [Concomitant]

REACTIONS (1)
  - DYSGEUSIA [None]
